FAERS Safety Report 19107575 (Version 1)
Quarter: 2021Q2

REPORT INFORMATION
  Report Type: Spontaneous
  Country: US (occurrence: US)
  Receive Date: 20210408
  Receipt Date: 20210408
  Transmission Date: 20210717
  Serious: Yes (Hospitalization)
  Sender: FDA-Public Use
  Company Number: None

PATIENT
  Age: 88 Year
  Sex: Female
  Weight: 70.3 kg

DRUGS (2)
  1. NEORAL [Suspect]
     Active Substance: CYCLOSPORINE
     Indication: COVID-19
     Dosage: ?          OTHER FREQUENCY:Q12H;?
     Route: 048
     Dates: start: 20210315, end: 20210317
  2. NEORAL [Suspect]
     Active Substance: CYCLOSPORINE
     Indication: COVID-19
     Dosage: ?          OTHER FREQUENCY:Q12H;?
     Route: 048
     Dates: start: 20210317, end: 20210322

REACTIONS (9)
  - Vascular stent thrombosis [None]
  - Acute myocardial infarction [None]
  - Gastrooesophageal reflux disease [None]
  - Nausea [None]
  - Hypotension [None]
  - Right ventricular dysfunction [None]
  - Pulmonary arterial pressure increased [None]
  - Anaemia [None]
  - Chest pain [None]

NARRATIVE: CASE EVENT DATE: 20210327
